FAERS Safety Report 5593805-5 (Version None)
Quarter: 2007Q4

REPORT INFORMATION
  Report Type: 
  Country: None (occurrence: None)
  Receive Date: 20071218
  Receipt Date: 20070716
  Transmission Date: 20080405
  Serious: Yes (Hospitalization, Other)
  Sender: FDA-Public Use
  Company Number: 2006151377

PATIENT
  Age: 62 Year
  Sex: Male
  Weight: 133.4 kg

DRUGS (2)
  1. BEXTRA [Suspect]
     Indication: OSTEOARTHRITIS
     Dosage: (20 MG,1-2X)
     Dates: start: 20020411
  2. VIOXX [Suspect]
     Indication: OSTEOARTHRITIS
     Dosage: (1 IN 1 D)
     Dates: start: 20010501, end: 20020411

REACTIONS (1)
  - MYOCARDIAL INFARCTION [None]
